FAERS Safety Report 7386011-5 (Version None)
Quarter: 2011Q1

REPORT INFORMATION
  Report Type: 
  Country: None (occurrence: None)
  Receive Date: 20110331
  Receipt Date: 20110323
  Transmission Date: 20110831
  Serious: Yes (Other)
  Sender: FDA-Public Use
  Company Number: US-PERRIGO-11US002055

PATIENT
  Sex: Male
  Weight: 18.141 kg

DRUGS (2)
  1. IBUPROFEN [Suspect]
     Indication: ABDOMINAL PAIN UPPER
     Dosage: 7.5 ML, SINGLE
     Route: 048
     Dates: start: 20110306, end: 20110306
  2. IBUPROFEN [Suspect]
     Indication: PYREXIA
     Dosage: 7.5 ML, SINGLE
     Route: 048
     Dates: start: 20110304, end: 20110304

REACTIONS (5)
  - SWOLLEN TONGUE [None]
  - URTICARIA [None]
  - LIP SWELLING [None]
  - VOMITING [None]
  - HYPERSENSITIVITY [None]
